FAERS Safety Report 7437514-6 (Version None)
Quarter: 2011Q2

REPORT INFORMATION
  Report Type: 
  Country: None (occurrence: None)
  Receive Date: 20110426
  Receipt Date: 20110420
  Transmission Date: 20111010
  Serious: Yes (Hospitalization)
  Sender: FDA-Public Use
  Company Number: CA-PFIZER INC-2011087089

PATIENT
  Age: 65 Year
  Sex: Female
  Weight: 56.6 kg

DRUGS (1)
  1. ADVIL EXTRA STRENGTH [Suspect]
     Indication: PRODUCT USED FOR UNKNOWN INDICATION
     Dosage: 10-12 LIQUI-GELS DAILY
     Route: 048

REACTIONS (3)
  - HAEMORRHAGE INTRACRANIAL [None]
  - OVERDOSE [None]
  - HEADACHE [None]
